FAERS Safety Report 5345573-X (Version None)
Quarter: 2007Q2

REPORT INFORMATION
  Report Type: 
  Country: None (occurrence: None)
  Receive Date: 20070605
  Receipt Date: 20060502
  Transmission Date: 20071010
  Serious: No
  Sender: FDA-Public Use
  Company Number: US-ASTRAZENECA-2006UW08560

PATIENT
  Age: 77 Year
  Sex: Female
  Weight: 61.2 kg

DRUGS (2)
  1. PRILOSEC [Suspect]
     Indication: GASTROOESOPHAGEAL REFLUX DISEASE
     Route: 048
  2. SINUS INFECTION MEDICATION [Concomitant]
     Indication: SINUSITIS

REACTIONS (4)
  - ANGIOEDEMA [None]
  - CHOKING SENSATION [None]
  - EATING DISORDER [None]
  - SWOLLEN TONGUE [None]
